FAERS Safety Report 7262647-7 (Version None)
Quarter: 2011Q1

REPORT INFORMATION
  Report Type: 
  Country: None (occurrence: None)
  Receive Date: 20110130
  Receipt Date: 20100909
  Transmission Date: 20110831
  Serious: No
  Sender: FDA-Public Use
  Company Number: US-ABBOTT-10P-163-0670584-00

PATIENT
  Sex: Female
  Weight: 76.272 kg

DRUGS (4)
  1. HUMIRA [Suspect]
     Dates: start: 20100701
  2. HUMIRA [Suspect]
     Indication: RHEUMATOID ARTHRITIS
     Dates: start: 20100501, end: 20100601
  3. ISONIAZID [Concomitant]
     Indication: PRODUCT USED FOR UNKNOWN INDICATION
     Dates: start: 20100101
  4. METHOTREXATE [Concomitant]
     Indication: RHEUMATOID ARTHRITIS

REACTIONS (4)
  - DRUG DOSE OMISSION [None]
  - COUGH [None]
  - DEVICE MALFUNCTION [None]
  - INFECTION [None]
